FAERS Safety Report 8898933 (Version 3)
Quarter: 2013Q1

REPORT INFORMATION
  Report Type: Spontaneous
  Country: US (occurrence: US)
  Receive Date: 20121109
  Receipt Date: 20130114
  Transmission Date: 20140127
  Serious: Yes (Hospitalization)
  Sender: FDA-Public Use
  Company Number: US-BAYER-2012-115867

PATIENT
  Age: 26 Year
  Sex: Female
  Weight: 91 kg

DRUGS (13)
  1. YAZ [Suspect]
     Indication: ACNE
     Dosage: UNK
     Dates: start: 20101010, end: 20110731
  2. CETIRIZINE W/PSEUDOEPHEDRINE [Concomitant]
     Indication: HEADACHE
     Dosage: UNK
     Dates: start: 20110724, end: 20110731
  3. AMOXICILLIN [Concomitant]
     Indication: HEADACHE
     Dosage: UNK
     Dates: start: 20110724, end: 20110731
  4. AMOXICILLIN [Concomitant]
     Indication: SINUSITIS
     Dosage: UNK
     Dates: start: 20110722
  5. ALLERGY-SINUS COMTREX [Concomitant]
     Indication: HEADACHE
     Dosage: UNK
     Dates: start: 20110724, end: 20110731
  6. ADVIL [Concomitant]
     Indication: HEADACHE
     Dosage: UNK
     Dates: start: 20110724, end: 20110731
  7. ADVIL [Concomitant]
     Indication: HEADACHE
     Dosage: UNK
     Dates: start: 20110722
  8. EXCEDRIN [ACETYLSALICYLIC ACID,CAFFEINE,PARACETAMOL,SALICYLAMIDE] [Concomitant]
     Indication: HEADACHE
     Dosage: UNK
     Dates: start: 20110724, end: 20110731
  9. CLARITIN-D [Concomitant]
     Dosage: UNK
     Dates: start: 20110722
  10. MUCINEX DM [Concomitant]
     Dosage: UNK
     Dates: start: 20110722
  11. PROBIOTICS [Concomitant]
     Dosage: UNK
     Dates: start: 20110703, end: 20110731
  12. ALIGN [Concomitant]
     Dosage: UNK
     Dates: start: 20110703, end: 20110731
  13. KEPPRA [Concomitant]
     Indication: CONVULSION PROPHYLAXIS
     Dosage: 1000 MG, UNK
     Route: 048

REACTIONS (12)
  - Intracranial venous sinus thrombosis [Recovered/Resolved]
  - Pain [None]
  - Injury [Recovered/Resolved]
  - General physical health deterioration [Recovered/Resolved]
  - Blindness transient [Recovered/Resolved]
  - Amnesia [Recovered/Resolved]
  - Convulsion [Recovered/Resolved]
  - Emotional distress [None]
  - Anhedonia [None]
  - Pain [Recovered/Resolved]
  - Anxiety [None]
  - Blood disorder [None]
